FAERS Safety Report 17478137 (Version 2)
Quarter: 2020Q3

REPORT INFORMATION
  Report Type: Spontaneous
  Country: US (occurrence: US)
  Receive Date: 20200228
  Receipt Date: 20200710
  Transmission Date: 20201102
  Serious: No
  Sender: FDA-Public Use
  Company Number: US-SA-2020SA048581

PATIENT

DRUGS (2)
  1. DUPIXENT [Suspect]
     Active Substance: DUPILUMAB
     Indication: CHRONIC RHINOSINUSITIS WITH NASAL POLYPS
     Dosage: 300 MG, QOW
     Route: 058
     Dates: start: 20200131
  2. DUPIXENT [Suspect]
     Active Substance: DUPILUMAB
     Indication: SINUS POLYP

REACTIONS (1)
  - Arthralgia [Unknown]
